FAERS Safety Report 9424437 (Version 1)
Quarter: 2013Q3

REPORT INFORMATION
  Report Type: Report from Study
  Country: FR (occurrence: FR)
  Receive Date: 20130729
  Receipt Date: 20130729
  Transmission Date: 20140515
  Serious: Yes (Hospitalization)
  Sender: FDA-Public Use
  Company Number: FR-ASTELLAS-2013US007856

PATIENT
  Age: 72 Year
  Sex: Male

DRUGS (3)
  1. ERLOTINIB TABLET [Suspect]
     Indication: LUNG NEOPLASM MALIGNANT
     Dosage: UNK
     Route: 065
     Dates: start: 20100504, end: 20110621
  2. PEMETREXED DISODIUM [Suspect]
     Indication: LUNG NEOPLASM MALIGNANT
     Dosage: 870 MG, Q3W
     Route: 042
     Dates: start: 20110607, end: 20110717
  3. PEMETREXED DISODIUM [Suspect]
     Dosage: 656.25 MG, Q3W
     Route: 042
     Dates: start: 20110727, end: 20110816

REACTIONS (1)
  - Febrile bone marrow aplasia [Recovered/Resolved]
